FAERS Safety Report 19183874 (Version 2)
Quarter: 2021Q2

REPORT INFORMATION
  Report Type: Spontaneous
  Country: US (occurrence: US)
  Receive Date: 20210427
  Receipt Date: 20210505
  Transmission Date: 20210717
  Serious: Yes (Other)
  Sender: FDA-Public Use
  Company Number: US-PFIZER INC-2020506878

PATIENT
  Age: 13 Year
  Sex: Female
  Weight: 69.85 kg

DRUGS (2)
  1. GENOTROPIN [Suspect]
     Active Substance: SOMATROPIN
     Dosage: 3.2 MG, 1X/DAY (EVERY NIGHT TO HER ABDOMEN)
     Route: 058
     Dates: start: 2020
  2. GENOTROPIN [Suspect]
     Active Substance: SOMATROPIN
     Indication: GROWTH HORMONE DEFICIENCY
     Dosage: 3 MG, 1X/DAY (3MG INJECTION EVERY NIGHT)
     Dates: start: 20200501

REACTIONS (4)
  - Device difficult to use [Unknown]
  - Needle issue [Unknown]
  - Device difficult to use [Not Recovered/Not Resolved]
  - Poor quality device used [Unknown]

NARRATIVE: CASE EVENT DATE: 2020
